FAERS Safety Report 11398831 (Version 2)
Quarter: 2015Q3

REPORT INFORMATION
  Report Type: Report from Study
  Country: DE (occurrence: DE)
  Receive Date: 20150820
  Receipt Date: 20150924
  Transmission Date: 20151125
  Serious: Yes (Hospitalization)
  Sender: FDA-Public Use
  Company Number: DE-JNJFOC-20140507556

PATIENT
  Age: 79 Year
  Sex: Female
  Weight: 56.6 kg

DRUGS (11)
  1. SIMPONI [Suspect]
     Active Substance: GOLIMUMAB
     Indication: RHEUMATOID ARTHRITIS
     Route: 058
     Dates: start: 20140424
  2. BONVIVA [Concomitant]
     Active Substance: IBANDRONATE SODIUM
     Indication: OSTEOPOROSIS
     Route: 065
     Dates: start: 201307
  3. SIMPONI [Suspect]
     Active Substance: GOLIMUMAB
     Indication: RHEUMATOID ARTHRITIS
     Route: 058
     Dates: end: 20140418
  4. METOHEXAL [Concomitant]
     Active Substance: METOPROLOL SUCCINATE
     Dosage: START DATE: SINCE 20 YEARS
     Route: 065
     Dates: start: 200702
  5. PARACETAMOL [Concomitant]
     Active Substance: ACETAMINOPHEN
     Route: 065
  6. TARGIN [Concomitant]
     Active Substance: NALOXONE HYDROCHLORIDE\OXYCODONE HYDROCHLORIDE
     Dosage: (BEING TAPERED AT THE MOMENT)
     Route: 065
  7. IRBESARTAN. [Concomitant]
     Active Substance: IRBESARTAN
     Indication: HYPERTENSION
     Route: 065
  8. SIMPONI [Suspect]
     Active Substance: GOLIMUMAB
     Indication: RHEUMATOID ARTHRITIS
     Route: 058
     Dates: start: 201204
  9. CELEBREX [Concomitant]
     Active Substance: CELECOXIB
     Dosage: SINCE 10 DAYS
     Route: 065
     Dates: start: 2015
  10. CORTISONE [Concomitant]
     Active Substance: CORTISONE\HYDROCORTISONE
     Dosage: (START DATE: SINCE 20 YEARS)
     Route: 065
  11. PREDNISON [Concomitant]
     Active Substance: PREDNISONE
     Route: 065
     Dates: start: 20120815

REACTIONS (14)
  - Peripheral swelling [Not Recovered/Not Resolved]
  - Hyperhidrosis [Unknown]
  - Inflammation [Recovered/Resolved]
  - Pain [Unknown]
  - Sleep disorder [Unknown]
  - Cystitis [Recovered/Resolved]
  - Musculoskeletal pain [Not Recovered/Not Resolved]
  - Joint swelling [Recovered/Resolved]
  - Fatigue [Unknown]
  - Tongue ulceration [Unknown]
  - Body height decreased [Not Recovered/Not Resolved]
  - Rheumatoid arthritis [Not Recovered/Not Resolved]
  - Drug effect decreased [Unknown]
  - Peripheral swelling [Recovered/Resolved]

NARRATIVE: CASE EVENT DATE: 201309
